FAERS Safety Report 23764648 (Version 1)
Quarter: 2024Q2

REPORT INFORMATION
  Report Type: Spontaneous
  Country: US (occurrence: US)
  Receive Date: 20240420
  Receipt Date: 20240420
  Transmission Date: 20240716
  Serious: No
  Sender: FDA-Public Use
  Company Number: US-JNJFOC-20240400977

PATIENT
  Age: 76 Year
  Sex: Female
  Weight: 66.7 kg

DRUGS (33)
  1. IMODIUM A-D [Suspect]
     Active Substance: LOPERAMIDE HYDROCHLORIDE
     Indication: Diarrhoea
     Route: 065
  2. TREPROSTINIL [Concomitant]
     Active Substance: TREPROSTINIL
     Indication: Pulmonary arterial hypertension
     Route: 048
     Dates: start: 20230710
  3. TREPROSTINIL [Concomitant]
     Active Substance: TREPROSTINIL
     Route: 048
     Dates: start: 2023
  4. TREPROSTINIL [Concomitant]
     Active Substance: TREPROSTINIL
     Route: 048
     Dates: start: 2023, end: 2023
  5. TREPROSTINIL [Concomitant]
     Active Substance: TREPROSTINIL
     Route: 048
  6. TREPROSTINIL [Concomitant]
     Active Substance: TREPROSTINIL
     Route: 048
     Dates: start: 2023, end: 2023
  7. TREPROSTINIL [Concomitant]
     Active Substance: TREPROSTINIL
     Route: 048
     Dates: start: 2023, end: 2023
  8. TREPROSTINIL [Concomitant]
     Active Substance: TREPROSTINIL
     Dosage: (1 TABLET OF 1 MG AND 2 TABLETS OF 0.25 MG)
     Route: 048
     Dates: start: 2023
  9. TREPROSTINIL [Concomitant]
     Active Substance: TREPROSTINIL
     Route: 048
  10. TREPROSTINIL [Concomitant]
     Active Substance: TREPROSTINIL
     Route: 048
     Dates: start: 2023, end: 2023
  11. TREPROSTINIL [Concomitant]
     Active Substance: TREPROSTINIL
     Route: 048
     Dates: start: 2023, end: 2023
  12. TREPROSTINIL [Concomitant]
     Active Substance: TREPROSTINIL
     Route: 048
     Dates: start: 2023
  13. TREPROSTINIL [Concomitant]
     Active Substance: TREPROSTINIL
     Route: 048
  14. TREPROSTINIL [Concomitant]
     Active Substance: TREPROSTINIL
     Route: 048
  15. TREPROSTINIL [Concomitant]
     Active Substance: TREPROSTINIL
     Route: 048
     Dates: start: 20231007
  16. TREPROSTINIL [Concomitant]
     Active Substance: TREPROSTINIL
     Route: 048
     Dates: start: 20231007
  17. TYLENOL 8HR [Concomitant]
     Active Substance: ACETAMINOPHEN
     Indication: Product used for unknown indication
     Route: 065
  18. METOPROLOL SUCCINATE [Concomitant]
     Active Substance: METOPROLOL SUCCINATE
     Indication: Product used for unknown indication
     Route: 065
  19. AMLODIPINE BESYLATE [Concomitant]
     Active Substance: AMLODIPINE BESYLATE
     Indication: Product used for unknown indication
     Route: 065
  20. CALCIUM CARBONATE\CHOLECALCIFEROL [Concomitant]
     Active Substance: CALCIUM CARBONATE\CHOLECALCIFEROL
     Indication: Product used for unknown indication
     Route: 065
  21. HERBALS\TURMERIC [Concomitant]
     Active Substance: HERBALS\TURMERIC
     Indication: Product used for unknown indication
     Route: 065
  22. HYDROXYCHLOROQUINE SULFATE [Concomitant]
     Active Substance: HYDROXYCHLOROQUINE SULFATE
     Indication: Product used for unknown indication
     Route: 065
  23. ATORVASTATIN CALCIUM [Concomitant]
     Active Substance: ATORVASTATIN CALCIUM
     Indication: Product used for unknown indication
     Route: 065
  24. PRILOSEC [Concomitant]
     Active Substance: OMEPRAZOLE MAGNESIUM
     Indication: Product used for unknown indication
     Route: 065
  25. LEXAPRO [Concomitant]
     Active Substance: ESCITALOPRAM OXALATE
     Indication: Product used for unknown indication
     Route: 065
  26. HYDROCHLOROTHIAZIDE [Concomitant]
     Active Substance: HYDROCHLOROTHIAZIDE
     Indication: Product used for unknown indication
     Route: 065
  27. VITAMIN B COMPLEX [Concomitant]
     Active Substance: CYANOCOBALAMIN\DEXPANTHENOL\NIACINAMIDE\PYRIDOXINE HYDROCHLORIDE\RIBOFLAVIN 5^-PHOSPHATE SODIUM\THIA
     Indication: Product used for unknown indication
     Route: 065
  28. ALBUTEROL SULFATE [Concomitant]
     Active Substance: ALBUTEROL SULFATE
     Indication: Product used for unknown indication
     Route: 065
  29. AMBRISENTAN [Concomitant]
     Active Substance: AMBRISENTAN
     Indication: Product used for unknown indication
     Route: 065
  30. LISINOPRIL [Concomitant]
     Active Substance: LISINOPRIL
     Indication: Product used for unknown indication
     Route: 065
  31. VITAMIN B12 [Concomitant]
     Active Substance: CYANOCOBALAMIN
     Indication: Product used for unknown indication
     Route: 065
  32. FOLIC ACID [Concomitant]
     Active Substance: FOLIC ACID
     Indication: Product used for unknown indication
     Route: 065
  33. ADEMPAS [Concomitant]
     Active Substance: RIOCIGUAT
     Indication: Product used for unknown indication
     Route: 065

REACTIONS (4)
  - Diarrhoea [Unknown]
  - Nausea [Unknown]
  - Abdominal distension [Unknown]
  - Constipation [Unknown]

NARRATIVE: CASE EVENT DATE: 20230101
